FAERS Safety Report 7603504-3 (Version None)
Quarter: 2011Q2

REPORT INFORMATION
  Report Type: 
  Country: None (occurrence: None)
  Receive Date: 20110629
  Receipt Date: 20110620
  Transmission Date: 20111010
  Serious: Yes (Death)
  Sender: FDA-Public Use
  Company Number: DSA_45356_2011

PATIENT
  Age: 31 Year
  Sex: Female

DRUGS (3)
  1. ELONTRIL (ELONTRIL-BUPROPION HYDROCHLORIDE EXTEDED RELEASE) 150 MG (NO [Suspect]
     Indication: PRODUCT USED FOR UNKNOWN INDICATION
     Dosage: 1X ORAL
     Route: 048
  2. ATROVENT [Suspect]
     Indication: PRODUCT USED FOR UNKNOWN INDICATION
     Dosage: DF
  3. BECLOMETHASONE /00212602/ (BECLOMETHASONE) [Suspect]
     Indication: PRODUCT USED FOR UNKNOWN INDICATION
     Dosage: DF

REACTIONS (3)
  - COMPLETED SUICIDE [None]
  - INTENTIONAL OVERDOSE [None]
  - TOXICITY TO VARIOUS AGENTS [None]
